FAERS Safety Report 14614864 (Version 2)
Quarter: 2018Q1

REPORT INFORMATION
  Report Type: Spontaneous
  Country: GB (occurrence: GB)
  Receive Date: 20180308
  Receipt Date: 20180322
  Transmission Date: 20180509
  Serious: Yes (Other)
  Sender: FDA-Public Use
  Company Number: GB-PFIZER INC-2018094074

PATIENT
  Age: 28 Year
  Sex: Male
  Weight: 69.85 kg

DRUGS (1)
  1. VENLAFAXINE HCL [Suspect]
     Active Substance: VENLAFAXINE HYDROCHLORIDE
     Dosage: 225 MG, UNK
     Route: 048
     Dates: start: 20160310

REACTIONS (4)
  - Paraesthesia [Unknown]
  - Hyperhidrosis [Unknown]
  - Vertigo [Unknown]
  - Night sweats [Unknown]
